FAERS Safety Report 19802350 (Version 1)
Quarter: 2021Q3

REPORT INFORMATION
  Report Type: Spontaneous
  Country: US (occurrence: US)
  Receive Date: 20210907
  Receipt Date: 20210907
  Transmission Date: 20211014
  Serious: Yes (Disabling)
  Sender: FDA-Public Use
  Company Number: None

PATIENT
  Age: 62 Year
  Sex: Female
  Weight: 63 kg

DRUGS (1)
  1. MESTINON [Suspect]
     Active Substance: PYRIDOSTIGMINE BROMIDE
     Indication: AUTONOMIC NERVOUS SYSTEM IMBALANCE
     Route: 048
     Dates: start: 20210711, end: 20210901

REACTIONS (1)
  - Depression [None]

NARRATIVE: CASE EVENT DATE: 20210815
